FAERS Safety Report 9228685 (Version 1)
Quarter: 2013Q2

REPORT INFORMATION
  Report Type: Spontaneous
  Country: CY (occurrence: CY)
  Receive Date: 20130412
  Receipt Date: 20130412
  Transmission Date: 20140414
  Serious: Yes (Life-Threatening, Hospitalization)
  Sender: FDA-Public Use
  Company Number: CY-JNJFOC-20130401950

PATIENT
  Age: 68 Year
  Sex: Female

DRUGS (4)
  1. FENTANYL [Suspect]
     Indication: PRODUCT USED FOR UNKNOWN INDICATION
     Route: 062
  2. AMITRIPTYLINE [Interacting]
     Indication: DEPRESSION
     Route: 065
  3. LINEZOLID [Interacting]
     Indication: SEPSIS
     Route: 065
  4. CLOXACILLIN [Concomitant]
     Indication: SEPSIS
     Route: 065

REACTIONS (3)
  - Respiratory disorder [Unknown]
  - Serotonin syndrome [Recovering/Resolving]
  - Drug interaction [Recovered/Resolved]
